FAERS Safety Report 20409214 (Version 1)
Quarter: 2022Q1

REPORT INFORMATION
  Report Type: Report from Study
  Country: EG (occurrence: EG)
  Receive Date: 20220201
  Receipt Date: 20220201
  Transmission Date: 20220424
  Serious: Yes (Hospitalization, Other)
  Sender: FDA-Public Use
  Company Number: EG-NOVARTISPH-NVSC2022EG020402

PATIENT
  Age: 56 Year
  Sex: Female

DRUGS (7)
  1. AFINITOR [Suspect]
     Active Substance: EVEROLIMUS
     Indication: Breast cancer metastatic
     Dosage: 2 DOSAGE FORM, 2 TABLET AT ONCE
     Route: 065
     Dates: start: 202109, end: 202111
  2. KISQALI [Suspect]
     Active Substance: RIBOCICLIB
     Indication: Breast cancer metastatic
     Dosage: SEP OR OCT 2021 ( A WEEK AFTER STARTING AFFINITOR), 200 MGS TWO TABLETS AT ONCE DAILY
     Route: 065
  3. VALSARTAN [Concomitant]
     Active Substance: VALSARTAN
     Indication: Hypertension
     Dosage: ONCE PER DAY, 3 OR 4 YEARS AGO EXACT DATE UNKNOWN
     Route: 065
  4. FASLODEX [Concomitant]
     Active Substance: FULVESTRANT
     Indication: Breast cancer
     Dosage: TWO INJECTIONS PER MONTH
     Route: 065
     Dates: start: 202110
  5. CIDOPHAGE [Concomitant]
     Indication: Diabetes mellitus
     Dosage: UNK, QD
     Route: 065
     Dates: start: 2020
  6. CONCOR 5 PLUS [Concomitant]
     Indication: Hypertension
     Dosage: YEARS AGO, ONCE
     Route: 065
  7. IBUPROFEN [Concomitant]
     Active Substance: IBUPROFEN
     Indication: Pain prophylaxis
     Dosage: UNK, 200 OR 400 OR 600 DEPENDS ON SEVERITY OF HER BONE
     Route: 065
     Dates: start: 202109

REACTIONS (5)
  - Swelling face [Recovered/Resolved]
  - Decreased immune responsiveness [Recovered/Resolved]
  - Incorrect dose administered [Recovered/Resolved]
  - Rheumatoid arthritis [Not Recovered/Not Resolved]
  - Pelvic pain [Recovering/Resolving]

NARRATIVE: CASE EVENT DATE: 20210901
